FAERS Safety Report 17114039 (Version 2)
Quarter: 2019Q4

REPORT INFORMATION
  Report Type: Spontaneous
  Country: US (occurrence: US)
  Receive Date: 20191205
  Receipt Date: 20191205
  Transmission Date: 20200122
  Serious: No
  Sender: FDA-Public Use
  Company Number: US-UNICHEM PHARMACEUTICALS (USA) INC-UCM201904-000137

PATIENT
  Age: 74 Year
  Sex: Female
  Weight: 146 kg

DRUGS (13)
  1. GLIMEPIRIDE. [Concomitant]
     Active Substance: GLIMEPIRIDE
     Indication: DIABETES MELLITUS
  2. FAMOTIDINE. [Concomitant]
     Active Substance: FAMOTIDINE
     Indication: GASTROOESOPHAGEAL REFLUX DISEASE
  3. LOPERAMIDE HYDROCHLORIDE. [Concomitant]
     Active Substance: LOPERAMIDE HYDROCHLORIDE
     Indication: IRRITABLE BOWEL SYNDROME
     Dosage: HALF OF ONE OF 1 MG
  4. LEVOTHYROXINE. [Concomitant]
     Active Substance: LEVOTHYROXINE
     Indication: THYROID DISORDER
  5. BABY ASPIRIN [Concomitant]
     Active Substance: ASPIRIN
     Indication: COR PULMONALE ACUTE
     Dosage: ONE TABLET EVERY DAY
  6. INSULIN [Concomitant]
     Active Substance: INSULIN NOS
     Dosage: INSULIN R
  7. FLUTICASONE PROPIONATE NASAL SPRAY [Concomitant]
     Active Substance: FLUTICASONE PROPIONATE
     Indication: DYSPNOEA
     Route: 045
  8. AMLODIPINE BESYLATE 5MG TABLETS USP [Suspect]
     Active Substance: AMLODIPINE BESYLATE
     Indication: HYPERTENSION
     Route: 048
  9. CARVEDILOL. [Concomitant]
     Active Substance: CARVEDILOL
     Indication: HYPERTENSION
     Dosage: 6.25 MG TABLETS
  10. VITAMIN D [Concomitant]
     Active Substance: VITAMIN D NOS
     Dosage: ONCE A WEEK
  11. INSULIN [Concomitant]
     Active Substance: INSULIN NOS
     Indication: DIABETES MELLITUS
     Dosage: INSULIN M
  12. NEXIUM [Concomitant]
     Active Substance: ESOMEPRAZOLE MAGNESIUM
     Indication: DYSPEPSIA
  13. FAMOTIDINE. [Concomitant]
     Active Substance: FAMOTIDINE
     Indication: DYSPEPSIA
     Route: 048

REACTIONS (3)
  - Treatment noncompliance [Unknown]
  - Dizziness [Not Recovered/Not Resolved]
  - Insomnia [Unknown]
